FAERS Safety Report 8031484-8 (Version None)
Quarter: 2012Q1

REPORT INFORMATION
  Report Type: 
  Country: None (occurrence: None)
  Receive Date: 20120109
  Receipt Date: 20120103
  Transmission Date: 20120608
  Serious: Yes (Hospitalization, Other)
  Sender: FDA-Public Use
  Company Number: US-BAYER-2011-036600

PATIENT
  Age: 45 Year
  Sex: Female
  Weight: 59.41 kg

DRUGS (9)
  1. DROSPIRENONE AND ETHINYL ESTRADIOL [Suspect]
     Indication: CONTRACEPTION
     Dosage: UNK
     Dates: start: 20030101, end: 20100628
  2. SULFAMETHOXAZOLE AND TRIMETHOPRIM [Concomitant]
     Dosage: UNK
     Dates: start: 20100301
  3. ATARAX [Concomitant]
     Indication: URTICARIA
     Dosage: UNK
     Dates: start: 20090101
  4. YASMIN [Suspect]
     Indication: CONTRACEPTION
     Dosage: UNK
     Dates: start: 20030101, end: 20100628
  5. ELETRIPTAN HYDROBROMIDE [Concomitant]
     Indication: MIGRAINE
  6. ESTRASORB [Concomitant]
  7. HYDROXYZINE [Concomitant]
     Dosage: 25 MG, PRN
     Route: 048
     Dates: start: 20050831, end: 20100616
  8. RELPAX [Concomitant]
     Dosage: 40 MG, PRN
     Route: 048
     Dates: start: 20071112, end: 20100306
  9. MOTRIN [Concomitant]

REACTIONS (5)
  - DEFORMITY [None]
  - INJURY [None]
  - PAIN [None]
  - PULMONARY EMBOLISM [None]
  - THROMBOSIS [None]
